FAERS Safety Report 10273619 (Version 1)
Quarter: 2014Q3

REPORT INFORMATION
  Report Type: Spontaneous
  Country: PK (occurrence: PK)
  Receive Date: 20140702
  Receipt Date: 20140702
  Transmission Date: 20150326
  Serious: Yes (Hospitalization)
  Sender: FDA-Public Use
  Company Number: PK-GLAXOSMITHKLINE-B1009807A

PATIENT
  Age: 5 Month

DRUGS (1)
  1. FLUTICASONE [Suspect]
     Active Substance: FLUTICASONE\FLUTICASONE PROPIONATE
     Indication: SKIN DISORDER
     Route: 061

REACTIONS (5)
  - Fontanelle bulging [Unknown]
  - CSF pressure increased [Unknown]
  - Pyrexia [Unknown]
  - Vomiting projectile [Unknown]
  - Intracranial pressure increased [Recovered/Resolved]
